FAERS Safety Report 4843023-0 (Version None)
Quarter: 2005Q4

REPORT INFORMATION
  Report Type: 
  Country: None (occurrence: None)
  Receive Date: 20051201
  Receipt Date: 20051123
  Transmission Date: 20060501
  Serious: Yes (Hospitalization)
  Sender: FDA-Public Use
  Company Number: AU-ROCHE-426039

PATIENT
  Age: 34 Year
  Sex: Female
  Weight: 60 kg

DRUGS (6)
  1. TORADOL [Suspect]
     Indication: PAIN
     Route: 058
     Dates: start: 20030827, end: 20030827
  2. AROPAX [Suspect]
     Indication: DEPRESSION
     Route: 048
  3. PROZAC [Suspect]
     Indication: DEPRESSION
     Route: 048
  4. TRAMAL [Suspect]
     Indication: PAIN
     Route: 042
     Dates: start: 20030827, end: 20030827
  5. PROPOFOL [Suspect]
     Indication: DRUG USE FOR UNKNOWN INDICATION
     Route: 042
  6. ATRACURIUM BESYLATE [Suspect]
     Indication: DRUG USE FOR UNKNOWN INDICATION
     Route: 042

REACTIONS (5)
  - HYPERTONIA [None]
  - MUTISM [None]
  - SEROTONIN SYNDROME [None]
  - SOMNOLENCE [None]
  - TREMOR [None]
